FAERS Safety Report 5258347-5 (Version None)
Quarter: 2007Q1

REPORT INFORMATION
  Report Type: 
  Country: None (occurrence: None)
  Receive Date: 20070306
  Receipt Date: 20070306
  Transmission Date: 20070707
  Serious: Yes (Hospitalization)
  Sender: FDA-Public Use
  Company Number: None

PATIENT
  Age: 59 Year
  Sex: Male

DRUGS (11)
  1. LISINOPRIL [Suspect]
     Indication: CORONARY ARTERY DISEASE
     Dosage: 2.5MG PO DAILY
     Route: 048
     Dates: start: 20070115
  2. LISINOPRIL [Suspect]
     Indication: HYPERTENSION
     Dosage: 2.5MG PO DAILY
     Route: 048
     Dates: start: 20070115
  3. ASPIRIN [Concomitant]
  4. ARICEPT [Concomitant]
  5. ATARAX [Concomitant]
  6. RISPERDAL [Concomitant]
  7. ZOCOR [Concomitant]
  8. FLOMAX [Concomitant]
  9. ATIVAN [Concomitant]
  10. DEPAKENE [Concomitant]
  11. VITAMIN CAP [Concomitant]

REACTIONS (3)
  - FACIAL BONES FRACTURE [None]
  - FALL [None]
  - NONSPECIFIC REACTION [None]
